FAERS Safety Report 10149560 (Version 1)
Quarter: 2014Q2

REPORT INFORMATION
  Report Type: Spontaneous
  Country: US (occurrence: None)
  Receive Date: 20140501
  Receipt Date: 20140501
  Transmission Date: 20141212
  Serious: Yes (Other)
  Sender: FDA-Public Use
  Company Number: None

PATIENT
  Age: 44 Year
  Sex: Female
  Weight: 65.77 kg

DRUGS (1)
  1. LIPITOR 10 MG GENERIC [Suspect]
     Indication: BLOOD CHOLESTEROL ABNORMAL
     Dosage: 1; ONCE DAILY
     Route: 048
     Dates: start: 20140424, end: 20140430

REACTIONS (4)
  - Pyrexia [None]
  - Back pain [None]
  - Paraesthesia [None]
  - Paraesthesia [None]
